FAERS Safety Report 5044526-9 (Version None)
Quarter: 2006Q3

REPORT INFORMATION
  Report Type: 
  Country: None (occurrence: None)
  Receive Date: 20060706
  Receipt Date: 20060616
  Transmission Date: 20061208
  Serious: Yes (Life-Threatening)
  Sender: FDA-Public Use
  Company Number: DE-BRISTOL-MYERS SQUIBB COMPANY-13415765

PATIENT
  Age: 37 Year
  Sex: Female
  Weight: 62 kg

DRUGS (8)
  1. TAXOL [Suspect]
     Indication: BREAST CANCER
     Dates: start: 20060608, end: 20060608
  2. EPIRUBICIN [Suspect]
     Indication: BREAST CANCER
     Dates: start: 20060504, end: 20060504
  3. NEULASTA [Concomitant]
     Dates: start: 20060407
  4. ARANESP [Concomitant]
     Dates: start: 20060420
  5. WOBENZYM [Concomitant]
     Dates: start: 20060406, end: 20060616
  6. DAKTAR [Concomitant]
     Dates: start: 20060528, end: 20060616
  7. NYSTATIN [Concomitant]
     Dates: start: 20060516, end: 20060616
  8. PERENTEROL [Concomitant]
     Dates: start: 20060501, end: 20060517

REACTIONS (1)
  - NEPHRITIS ALLERGIC [None]
